FAERS Safety Report 24430684 (Version 4)
Quarter: 2024Q4

REPORT INFORMATION
  Report Type: Spontaneous
  Country: US (occurrence: US)
  Receive Date: 20241013
  Receipt Date: 20241118
  Transmission Date: 20250115
  Serious: No
  Sender: ROCHE
  Company Number: US-ROCHE-10000102510

PATIENT
  Age: 18 Year
  Sex: Female

DRUGS (3)
  1. XOLAIR PFS [Suspect]
     Active Substance: OMALIZUMAB
     Indication: Asthma
     Dosage: TAKES 2 OF 150MG PFS AND 1 OF 75MG PFS
     Route: 058
     Dates: start: 202312
  2. XOLAIR PFS [Suspect]
     Active Substance: OMALIZUMAB
     Indication: Bronchospasm
     Dosage: TAKES 2 OF 150MG PFS AND 1 OF 75MG PFS
     Route: 058
  3. XOLAIR PFS [Suspect]
     Active Substance: OMALIZUMAB
     Dosage: TAKES 2 OF 150MG PFS AND 1 OF 75MG PFS
     Route: 058
     Dates: start: 202001

REACTIONS (4)
  - Device defective [Unknown]
  - Underdose [Unknown]
  - Off label use [Unknown]
  - Wrong technique in product usage process [Unknown]

NARRATIVE: CASE EVENT DATE: 20241001
